FAERS Safety Report 9659200 (Version 1)
Quarter: 2013Q4

REPORT INFORMATION
  Report Type: Spontaneous
  Country: US (occurrence: US)
  Receive Date: 20131031
  Receipt Date: 20131031
  Transmission Date: 20140711
  Serious: Yes (Hospitalization, Other)
  Sender: FDA-Public Use
  Company Number: US-ASTRAZENECA-2013SE78417

PATIENT
  Age: 57 Year
  Sex: Female
  Weight: 95.3 kg

DRUGS (6)
  1. NEXIUM [Suspect]
     Indication: GASTROOESOPHAGEAL REFLUX DISEASE
     Dosage: LOWER DOSE ONE TIME A DAY
     Route: 048
     Dates: start: 2001
  2. NEXIUM [Suspect]
     Indication: GASTROOESOPHAGEAL REFLUX DISEASE
     Dosage: UNKNOWN BID
     Route: 048
     Dates: start: 2001, end: 2010
  3. FLEXERIL [Concomitant]
     Indication: MUSCLE SPASMS
     Route: 048
  4. DICLOFINAC [Concomitant]
     Indication: PAIN
     Dosage: PRN
     Route: 048
  5. OXYCODONE [Concomitant]
     Indication: PAIN
     Dosage: PRN
     Route: 048
  6. TRAMADOL [Concomitant]
     Indication: PAIN
     Dosage: 100 PRN
     Route: 048

REACTIONS (8)
  - Upper limb fracture [Unknown]
  - Wrist fracture [Unknown]
  - Rib fracture [Unknown]
  - Blood magnesium decreased [Unknown]
  - Chest pain [Unknown]
  - Muscle spasms [Unknown]
  - Osteoporosis [Unknown]
  - Off label use [Unknown]
